FAERS Safety Report 23326937 (Version 2)
Quarter: 2024Q1

REPORT INFORMATION
  Report Type: Spontaneous
  Country: US (occurrence: US)
  Receive Date: 20231221
  Receipt Date: 20240214
  Transmission Date: 20240410
  Serious: No
  Sender: FDA-Public Use
  Company Number: US-ABBVIE-5542357

PATIENT
  Age: 72 Year
  Sex: Female
  Weight: 77.11 kg

DRUGS (1)
  1. RESTASIS [Suspect]
     Active Substance: CYCLOSPORINE
     Indication: Product used for unknown indication
     Dosage: 1 DROP IN EACH EYE IN AM + PM
     Route: 047
     Dates: start: 20230916, end: 20231019

REACTIONS (2)
  - Lacrimation increased [Recovered/Resolved]
  - Vision blurred [Unknown]

NARRATIVE: CASE EVENT DATE: 20230916
